FAERS Safety Report 8250537-2 (Version None)
Quarter: 2012Q2

REPORT INFORMATION
  Report Type: 
  Country: None (occurrence: None)
  Receive Date: 20120402
  Receipt Date: 20120328
  Transmission Date: 20120825
  Serious: Yes (Other)
  Sender: FDA-Public Use
  Company Number: US-PFIZER INC-2012080368

PATIENT
  Sex: Female

DRUGS (1)
  1. CHANTIX [Suspect]
     Dosage: UNK

REACTIONS (8)
  - DIABETES MELLITUS [None]
  - ANXIETY DISORDER [None]
  - NEUROPATHY PERIPHERAL [None]
  - INTERVERTEBRAL DISC DEGENERATION [None]
  - OEDEMA PERIPHERAL [None]
  - SLEEP APNOEA SYNDROME [None]
  - DIABETIC NEUROPATHY [None]
  - ACCIDENT [None]
